FAERS Safety Report 8230460-X (Version None)
Quarter: 2012Q1

REPORT INFORMATION
  Report Type: 
  Country: None (occurrence: None)
  Receive Date: 20120323
  Receipt Date: 20120314
  Transmission Date: 20120608
  Serious: Yes (Hospitalization, Other)
  Sender: FDA-Public Use
  Company Number: US-AMGEN-USASP2012011091

PATIENT
  Age: 61 Year
  Sex: Female
  Weight: 69.841 kg

DRUGS (25)
  1. LYRICA [Concomitant]
     Dosage: 50 MG, BID
     Dates: start: 20111017, end: 20111117
  2. ZOMETA [Concomitant]
     Dosage: UNK, Q3MO
     Dates: start: 20101101
  3. IBUPROFEN (ADVIL) [Concomitant]
     Dosage: UNK UNK, PRN
  4. LYRICA [Concomitant]
     Dosage: 50 MG, QD
     Dates: start: 20101101, end: 20111016
  5. VICODIN [Concomitant]
     Indication: ARTHRALGIA
     Dosage: UNK UNK, PRN
  6. CIPRO [Concomitant]
     Indication: INFECTION PROPHYLAXIS
     Dosage: UNK
  7. VITAMIN D [Concomitant]
     Dosage: UNK
  8. ATENOLOL [Concomitant]
     Dosage: 25 MG, UNK
  9. NEULASTA [Suspect]
     Dosage: 4 MG, Q3WK
     Route: 058
     Dates: start: 20111118
  10. CALCIUM WITH VITAMIN D             /00944201/ [Concomitant]
     Dosage: UNK
  11. NAPROXEN (ALEVE) [Concomitant]
     Dosage: UNK UNK, PRN
  12. NEULASTA [Suspect]
     Indication: CHEMOTHERAPY
     Dosage: 6 MG, Q3WK
     Route: 058
     Dates: start: 20110618, end: 20111117
  13. LYRICA [Concomitant]
     Dosage: 350 MG, QD
     Dates: start: 20111230, end: 20120124
  14. LYRICA [Concomitant]
     Dosage: 100 MG, BID
     Dates: start: 20120125, end: 20120308
  15. VICODIN [Concomitant]
     Indication: PAIN IN EXTREMITY
  16. XELODA [Concomitant]
  17. ZOMETA [Concomitant]
     Dosage: UNK UNK, QMO
     Dates: start: 20080901
  18. VITAMINS                           /00067501/ [Concomitant]
     Dosage: UNK
  19. IXEMPRA KIT [Concomitant]
     Indication: BREAST CANCER
     Dosage: 48 MG, Q3WK
     Route: 042
     Dates: start: 20110616, end: 20110707
  20. IXEMPRA KIT [Concomitant]
     Dosage: 32 MG, Q3WK
     Dates: start: 20110708, end: 20120124
  21. IXEMPRA KIT [Concomitant]
     Dosage: 28 MG, Q3WK
     Dates: start: 20120125
  22. LYRICA [Concomitant]
     Dosage: 100 MG, BID
     Dates: start: 20111118, end: 20111229
  23. LYRICA [Concomitant]
     Dosage: 100 MG, QOD
     Dates: start: 20110309
  24. FASLODEX [Concomitant]
     Dosage: 500 MG, QMO
  25. OXYCODONE HCL [Concomitant]
     Dosage: UNK UNK, PRN

REACTIONS (14)
  - DENTAL CARE [None]
  - TREMOR [None]
  - NAIL DISORDER [None]
  - ASTHENIA [None]
  - PAIN IN EXTREMITY [None]
  - FEELING OF BODY TEMPERATURE CHANGE [None]
  - DYSURIA [None]
  - INJECTION SITE PAIN [None]
  - HYPOAESTHESIA [None]
  - NEUTROPENIA [None]
  - NEUROPATHY PERIPHERAL [None]
  - FATIGUE [None]
  - BONE PAIN [None]
  - PYREXIA [None]
